FAERS Safety Report 7747327-3 (Version None)
Quarter: 2011Q3

REPORT INFORMATION
  Report Type: 
  Country: None (occurrence: None)
  Receive Date: 20110913
  Receipt Date: 20110908
  Transmission Date: 20111222
  Serious: Yes (Other)
  Sender: FDA-Public Use
  Company Number: GB-PFIZER INC-2010147833

PATIENT
  Age: 61 Year
  Sex: Male
  Weight: 109 kg

DRUGS (6)
  1. LIPITOR [Suspect]
     Dosage: 80 MG, UNK
     Route: 048
     Dates: start: 20101006, end: 20110101
  2. ISOSORBIDE MONONITRATE [Concomitant]
     Dosage: 20 MG, 2X/DAY
     Route: 048
     Dates: start: 20080121
  3. LIPITOR [Suspect]
     Indication: BLOOD CHOLESTEROL INCREASED
     Dosage: 40 MG, 1X/DAY
     Dates: start: 20080101, end: 20101006
  4. OMEPRAZOLE [Concomitant]
     Dosage: 20 MG, 1X/DAY
     Route: 048
     Dates: start: 20080305
  5. RAMIPRIL [Concomitant]
     Dosage: 2.5 MG, 1X/DAY
     Route: 048
  6. WARFARIN [Concomitant]
     Indication: INTERNATIONAL NORMALISED RATIO
     Dosage: UNK
     Dates: start: 20080121

REACTIONS (16)
  - AMNESIA [None]
  - COUGH [None]
  - THROMBOSIS [None]
  - PRURITUS [None]
  - MOOD SWINGS [None]
  - DYSPEPSIA [None]
  - PAIN [None]
  - RENAL DISORDER [None]
  - LIGAMENT SPRAIN [None]
  - MYOCARDIAL INFARCTION [None]
  - LACRIMATION INCREASED [None]
  - SKIN TIGHTNESS [None]
  - SKIN DISORDER [None]
  - NEPHROLITHIASIS [None]
  - CHEST PAIN [None]
  - RASH [None]
